FAERS Safety Report 7584902-3 (Version None)
Quarter: 2011Q2

REPORT INFORMATION
  Report Type: 
  Country: None (occurrence: None)
  Receive Date: 20110630
  Receipt Date: 20110620
  Transmission Date: 20111010
  Serious: Yes (Hospitalization, Other)
  Sender: FDA-Public Use
  Company Number: PHHY2011FR30802

PATIENT
  Sex: Female
  Weight: 60 kg

DRUGS (103)
  1. STALEVO 100 [Suspect]
     Dosage: 5 DF, 5 TAB/DAY
     Dates: start: 20091019
  2. MODOPAR [Suspect]
     Dosage: 125 MG,1/DAY PLUS 1 IF NEEDED, 62.5 MG, 5 TABS/DAY
     Dates: start: 20090406
  3. MODOPAR [Suspect]
     Dosage: 125 MG AT 1 TABLET 2 TO 3 TIMES PER DAY, MODOPAR 62.5 MG AT 1 TABLET 4 TIMES PER
     Route: 048
  4. EFFEXOR [Concomitant]
     Dosage: 75 MG, BID
     Dates: start: 20080625
  5. XANAX [Concomitant]
     Dosage: 0.5 MG, TID
     Dates: start: 20050331
  6. XANAX [Concomitant]
     Dosage: 0.5 MG, UNK
     Dates: start: 20080530
  7. XANAX [Concomitant]
     Dosage: 0.5 MG, 5/ DAY
     Dates: start: 20090205
  8. ACETAMINOPHEN AND TRAMADOL HCL [Concomitant]
     Dosage: 1 DF, TID
     Dates: start: 20060622
  9. IMOVANE [Concomitant]
     Dosage: 7.5 MG, QHS
  10. ATHYMIL [Concomitant]
     Dosage: 50 MG, UNK
     Dates: start: 20090725
  11. ECONAZOLE NITRATE [Concomitant]
     Dosage: UNK UKN, UNK
     Dates: start: 20060918
  12. ATARAX [Concomitant]
     Dosage: 5 DF, UNK
     Dates: start: 20090415
  13. DEPAKOTE [Concomitant]
     Dosage: 500 MG, BID
     Dates: start: 20091019
  14. ELUDRIL [Concomitant]
  15. STALEVO 100 [Suspect]
     Dosage: 1 DF, QID
     Route: 048
     Dates: start: 20080304
  16. STALEVO 100 [Suspect]
     Dosage: UNK UKN, UNK
     Dates: end: 20101101
  17. MODOPAR [Suspect]
     Dosage: 125 MG, 1 TAB IN EVENING
     Dates: start: 20091102
  18. EFFEXOR [Concomitant]
     Dosage: 75 MG, BID
     Dates: start: 20110406
  19. XANAX [Concomitant]
     Dosage: 0.25 MG, TID
     Dates: start: 20080130
  20. ACETAMINOPHEN AND TRAMADOL HCL [Concomitant]
     Dosage: 1 DF, QD
     Dates: start: 20080105
  21. ATHYMIL [Concomitant]
     Dosage: 30 MG, UNK
     Dates: start: 20090917
  22. ATHYMIL [Concomitant]
     Dosage: 30 MG, UNK
     Dates: start: 20091219
  23. CARBOCISTEINE [Concomitant]
  24. IBUPROFEN [Concomitant]
     Dosage: 400 MG, UNK
  25. STALEVO 100 [Suspect]
     Dosage: 5 DF, 5 TABLETS PER DAY
     Dates: start: 20090415
  26. MODOPAR [Suspect]
     Dosage: UNK UKN, UNK
     Dates: start: 19950101
  27. MODOPAR [Suspect]
     Dosage: 250 MG AT 1 CAPSULE 3 TIMES PER DAY, MODOPAR 125 MG AT 1 TABLET IN THE MORNING, MODOPAR 62.5
     Dates: start: 20070510
  28. MODOPAR [Suspect]
     Dosage: 125 MG TWICE PER DAY, MODOPAR 62.5 MG AT 1 CAPSULE 4 TIMES PER DAY DAILY
     Dates: start: 20080206
  29. MODOPAR [Suspect]
     Dosage: 125 MG ONCE PER DAY, MODOPAR 62.5 MG AT 5 TIMES PER DAY
     Dates: start: 20080915
  30. MODOPAR [Suspect]
     Dosage: 125 MG TAB IN EVENING, 62.5 MG 5 TABS PER DAY
     Dates: start: 20091102
  31. PRAMIPEXOLE DIHYCHLLORIDE [Suspect]
     Dosage: 0.7 MG, TID
     Dates: start: 20060622
  32. EFFEXOR [Concomitant]
     Dosage: 50 MG, UNK
     Dates: start: 20081029
  33. NECYRANE [Concomitant]
     Dosage: UNK UKN, UNK
     Dates: start: 20060313
  34. KETOCONAZOLE [Concomitant]
     Dosage: UNK UKN, UNK
     Dates: start: 20060918
  35. ATARAX [Concomitant]
     Dosage: 25 MG, UNK
     Dates: start: 20090209
  36. DEPAKOTE [Concomitant]
     Dosage: 250 MG, BID
     Dates: start: 20090512
  37. COMTAN [Suspect]
     Dosage: 0.5 TABLET 3 TIMES PER DAY
     Route: 048
     Dates: start: 20071205
  38. MODOPAR [Suspect]
     Dosage: 125 MG, BID (1 IN THE MORNING, 1 IN THE EVENING)
     Dates: start: 20090302
  39. MODOPAR [Suspect]
     Dosage: 125 MG, 1 TAB PER DAY
     Dates: start: 20090725
  40. MODOPAR [Suspect]
     Dosage: SCATTERED TAB BID, MODOPAR 62.5, 5 TABS/DAY
     Dates: start: 20090725
  41. MODOPAR [Suspect]
     Dosage: 125 MG TAB IN EVENING, 62.5 MG 5 TAB/DAY
     Dates: start: 20090917
  42. EFFEXOR [Concomitant]
     Dosage: 50 MG, BID
     Dates: start: 20080130
  43. EFFEXOR [Concomitant]
     Dosage: 75 MG, TID
     Dates: start: 20090209
  44. XANAX [Concomitant]
     Dosage: 0.5 MG, 5 TAB/DAY
     Dates: start: 20090602
  45. ATHYMIL [Concomitant]
     Dosage: 30 MG, QD
     Dates: start: 20080130
  46. LOXAPINE HCL [Concomitant]
     Dosage: 15 DRP, TID
     Dates: start: 20080130
  47. ACETAMINOPHEN [Concomitant]
     Dosage: 500 MG, UNK
     Dates: start: 20090602
  48. PRAZEPAM [Concomitant]
     Dosage: 10 MG, UNK
     Dates: start: 20090803
  49. STALEVO 100 [Suspect]
     Dosage: 5 DF,PER DAY
     Dates: start: 20091219
  50. MODOPAR [Suspect]
     Dosage: 0.5 DF, FIVE TIME DAILY
     Dates: start: 20070830
  51. MODOPAR [Suspect]
     Dosage: 125 MG, 1 TAB IN EVENING
     Dates: start: 20090602
  52. MODOPAR [Suspect]
     Dosage: 62.5 MG AT 1 CAPSULE 4 TIMES PER DAY
     Dates: start: 20080304
  53. MODOPAR [Suspect]
     Dosage: 125 MG ONE SCATTERED TAB PER DAY, 62.5 MG 3 TAB/DAY
     Dates: start: 20100302
  54. EFFEXOR [Concomitant]
     Dosage: 50 MG, QD
     Dates: start: 20080105
  55. EFFEXOR [Concomitant]
     Dosage: 75 MG, BID
     Dates: start: 20090818
  56. XANAX [Concomitant]
     Dosage: 0.5 MG, QID
  57. XANAX [Concomitant]
     Dosage: 0.5 MG, TID
     Dates: start: 20080625
  58. XANAX [Concomitant]
     Dosage: 0.5 MG, 5 TAB/DAY
     Dates: start: 20091019
  59. ATHYMIL [Concomitant]
     Dosage: 30 MG, UNK
     Dates: start: 20091112
  60. ATARAX [Concomitant]
     Dosage: 25 MG, TID
     Dates: start: 20080125
  61. LYSOPAINE [Concomitant]
  62. ATARAX [Concomitant]
     Dosage: 5 DF, UNK
     Dates: start: 20090406
  63. COMTAN [Suspect]
     Dosage: 0.5 TABLET 5 TIMES PER DAY
     Route: 048
     Dates: start: 20060629
  64. COMTAN [Suspect]
     Dosage: 0.5 TABLET FIVE TIMES PER DAY
     Route: 048
     Dates: start: 20080105
  65. STALEVO 100 [Suspect]
     Dosage: 6 DF, PER DAY
     Dates: start: 20100302
  66. MODOPAR [Suspect]
     Dosage: 125 MG, 1 TAB IN EVENING
     Dates: start: 20090927
  67. MODOPAR [Suspect]
     Dosage: 125 MG, UNK
     Dates: start: 20100727
  68. MODOPAR [Suspect]
     Dosage: 62.5 MG 5 TIMES PER DAY
     Dates: start: 20090505
  69. MODOPAR [Suspect]
     Dosage: 125 MG 1 TO 3 TIMES PER DAYUNK
     Route: 048
     Dates: start: 20080304
  70. EFFEXOR [Concomitant]
     Dosage: 50 MG, TID
     Dates: start: 20050331
  71. EFFEXOR [Concomitant]
     Dosage: 75 MG, BID
     Dates: start: 20090917
  72. XANAX [Concomitant]
     Dosage: 0.5 MG, 5 TAB/DAY
     Dates: start: 20090725
  73. LORAZEPAM [Concomitant]
     Dosage: 2.5 MG, UNK
     Dates: start: 20090209
  74. DEPAKOTE [Concomitant]
     Dosage: 250 MG, (2 IN MORNING, 2 IN EVENING)
     Dates: start: 20090519
  75. STALEVO 100 [Suspect]
     Dosage: 1 TABLET 5 TIMES PER DAY
     Route: 048
     Dates: start: 20080530
  76. MODOPAR [Suspect]
     Dosage: 125 MG, UNK
     Dates: start: 20090430
  77. MODOPAR [Suspect]
     Dosage: 250 MG AT 1 CAPSULE 3 TIMES PER DAY, MODOPAR 125 MG AT 1 TABLET IN THE MORNING, MODOPAR 62.5
     Dates: start: 20060622
  78. MODOPAR [Suspect]
     Dosage: 250 MG AT 1 CAPSULE 5 TIMES PER DAY
     Dates: start: 20070109
  79. MODOPAR [Suspect]
     Dosage: 250 MG AT 1 CAPSULE 3 TIMES PER DAY
     Dates: start: 20071205
  80. MODOPAR [Suspect]
     Dosage: 4 TIMES PER DAY
     Route: 048
     Dates: start: 20080530
  81. MODOPAR [Suspect]
     Dosage: 125 MG SCATTERED TAB IF NEEDED, 62.5 MG 5 TABS/D
     Dates: start: 20090818
  82. PERGOLIDE MESYLATE [Suspect]
     Dosage: UNK UKN, UNK
     Dates: start: 20030201
  83. EFFEXOR [Concomitant]
     Dosage: 37.5 MG, TID
     Dates: start: 20070109
  84. EFFEXOR [Concomitant]
     Dosage: 75 MG, BID
     Dates: start: 20091019
  85. XANAX [Concomitant]
     Dosage: 0.5 MG, 5 TABS/DAY
     Dates: start: 20090512
  86. ATHYMIL [Concomitant]
     Dosage: 10 MG, 5 TAB PER DAY
     Dates: start: 20090205
  87. ATHYMIL [Concomitant]
     Dosage: 30 MG, UNK
     Dates: start: 20090512
  88. ATHYMIL [Concomitant]
     Dosage: 30 MG, UNK
     Dates: start: 20090602
  89. CEFUROXIME [Concomitant]
     Dosage: 250 MG, BID
  90. COMTAN [Suspect]
     Indication: PARKINSON'S DISEASE
     Dosage: TWICE PER DAY
     Route: 048
     Dates: start: 20050119, end: 20050301
  91. STALEVO 100 [Suspect]
     Indication: PARKINSON'S DISEASE
     Dosage: 1 TABLET 5 TIMES PER DAY
     Route: 048
  92. STALEVO 100 [Suspect]
     Dosage: 5 DF, 5 TAB/DAY
     Dates: start: 20090725
  93. STALEVO 100 [Suspect]
     Dosage: 5 DF, 5 TAB/DAY
     Dates: start: 20090818
  94. STALEVO 100 [Suspect]
     Dosage: 5 DF, 5 TAB/DAY
     Dates: start: 20091102
  95. MODOPAR [Suspect]
     Indication: PARKINSON'S DISEASE
     Dosage: 125 MG, QD
  96. MODOPAR [Suspect]
     Dosage: 125 MG, 1 TAB PER DAY
     Dates: start: 20090818
  97. MODOPAR [Suspect]
     Dosage: 62.5 MG AT 4 TIMES PER DAY
     Dates: start: 20080530
  98. MODOPAR [Suspect]
     Dosage: 125 MG 4 TIMES PER DAY
     Route: 048
     Dates: start: 20080625
  99. MODOPAR [Suspect]
     Dosage: 125 MG AT 1 TABLET DAILY, MODOPAR 62.5 MG,
     Dates: start: 20081029
  100. EFFEXOR [Concomitant]
     Dosage: 50 MG, QD
     Dates: start: 20060622
  101. EFFEXOR [Concomitant]
     Dosage: 75 MG, UNK
     Dates: start: 20090602
  102. XANAX [Concomitant]
     Dosage: 0.5 MG, 5 TAB/DAY
     Dates: start: 20090406
  103. ATARAX [Concomitant]
     Dosage: 4 DF, UNK
     Dates: start: 20090602

REACTIONS (26)
  - PSYCHOMOTOR HYPERACTIVITY [None]
  - HYPOMANIA [None]
  - DEPRESSED MOOD [None]
  - THYMUS DISORDER [None]
  - RED BLOOD CELL SEDIMENTATION RATE INCREASED [None]
  - MUSCLE SPASMS [None]
  - COMPULSIVE SHOPPING [None]
  - SUICIDAL IDEATION [None]
  - TREMOR [None]
  - NECK PAIN [None]
  - SUICIDE ATTEMPT [None]
  - DYSPNOEA [None]
  - CORNEAL REFLEX DECREASED [None]
  - C-REACTIVE PROTEIN INCREASED [None]
  - PSYCHOTIC BEHAVIOUR [None]
  - ABNORMAL BEHAVIOUR [None]
  - BALANCE DISORDER [None]
  - WEIGHT INCREASED [None]
  - DEPRESSION [None]
  - MUSCULOSKELETAL PAIN [None]
  - FALL [None]
  - BACK PAIN [None]
  - CHROMATURIA [None]
  - AKINESIA [None]
  - MUSCLE RIGIDITY [None]
  - AMIMIA [None]
